FAERS Safety Report 10242811 (Version 1)
Quarter: 2014Q2

REPORT INFORMATION
  Report Type: Spontaneous
  Country: US (occurrence: US)
  Receive Date: 20140618
  Receipt Date: 20140618
  Transmission Date: 20141212
  Serious: Yes (Other)
  Sender: FDA-Public Use
  Company Number: US-UCBSA-2014001789

PATIENT
  Sex: Female

DRUGS (2)
  1. KEPPRA [Suspect]
     Dosage: UNK
  2. GILENYA [Suspect]
     Dosage: UNK

REACTIONS (26)
  - Withdrawal syndrome [Unknown]
  - Multiple sclerosis [Unknown]
  - Blindness [Unknown]
  - Encephalomalacia [Unknown]
  - Myalgia [Unknown]
  - Weight decreased [Unknown]
  - Disturbance in attention [Unknown]
  - Muscle spasms [Unknown]
  - Cognitive disorder [Not Recovered/Not Resolved]
  - Nystagmus [Unknown]
  - Muscle twitching [Not Recovered/Not Resolved]
  - Hypoaesthesia [Unknown]
  - Visual impairment [Unknown]
  - Hemiparesis [Unknown]
  - Balance disorder [Unknown]
  - Paraesthesia [Unknown]
  - Fatigue [Unknown]
  - Coordination abnormal [Unknown]
  - Muscular weakness [Unknown]
  - Dizziness [Unknown]
  - Affect lability [Unknown]
  - Diarrhoea [Unknown]
  - Irritable bowel syndrome [Unknown]
  - Restless legs syndrome [Unknown]
  - Depression [Unknown]
  - Migraine [Unknown]
